FAERS Safety Report 6570908-X (Version None)
Quarter: 2010Q1

REPORT INFORMATION
  Report Type: 
  Country: None (occurrence: None)
  Receive Date: 20100204
  Receipt Date: 20100201
  Transmission Date: 20100710
  Serious: Yes (Other)
  Sender: FDA-Public Use
  Company Number: US-RB-010424-09

PATIENT
  Sex: Female

DRUGS (2)
  1. SUBUTEX [Suspect]
     Indication: DRUG USE FOR UNKNOWN INDICATION
     Route: 060
     Dates: start: 20090225
  2. SUBOXONE [Suspect]
     Indication: DRUG USE FOR UNKNOWN INDICATION
     Route: 060
     Dates: start: 20071027, end: 20090209

REACTIONS (2)
  - BLIGHTED OVUM [None]
  - DRUG EXPOSURE DURING PREGNANCY [None]
